FAERS Safety Report 4731652-4 (Version None)
Quarter: 2005Q3

REPORT INFORMATION
  Report Type: 
  Country: None (occurrence: None)
  Receive Date: 20050802
  Receipt Date: 20050727
  Transmission Date: 20060218
  Serious: Yes (Death)
  Sender: FDA-Public Use
  Company Number: US-JNJFOC-20050800124

PATIENT
  Sex: Female

DRUGS (1)
  1. LEVAQUIN [Suspect]
     Indication: SEPSIS
     Route: 042

REACTIONS (3)
  - CEREBRAL DISORDER [None]
  - HUMAN EHRLICHIOSIS [None]
  - RENAL FAILURE [None]
